FAERS Safety Report 8245349-X (Version None)
Quarter: 2012Q1

REPORT INFORMATION
  Report Type: 
  Country: None (occurrence: None)
  Receive Date: 20120329
  Receipt Date: 20120321
  Transmission Date: 20120608
  Serious: Yes (Other)
  Sender: FDA-Public Use
  Company Number: GB-ELI_LILLY_AND_COMPANY-GB201201006789

PATIENT
  Sex: Male

DRUGS (2)
  1. ALFACALCIDOL [Concomitant]
  2. FORTEO [Suspect]
     Indication: HYPOPARATHYROIDISM

REACTIONS (3)
  - INJECTION SITE HAEMATOMA [None]
  - OFF LABEL USE [None]
  - INJECTION SITE URTICARIA [None]
